FAERS Safety Report 5512955-2 (Version None)
Quarter: 2007Q4

REPORT INFORMATION
  Report Type: 
  Country: None (occurrence: None)
  Receive Date: 20071112
  Receipt Date: 20071101
  Transmission Date: 20080405
  Serious: Yes (Disabling, Other)
  Sender: FDA-Public Use
  Company Number: US-MERCK-0711USA00431

PATIENT
  Age: 80 Year
  Sex: Female

DRUGS (4)
  1. ZOLINZA [Suspect]
     Indication: MYCOSIS FUNGOIDES
     Route: 048
     Dates: start: 20070925, end: 20071008
  2. INTERFERON ALFA [Concomitant]
     Route: 065
  3. TRICOR [Concomitant]
     Route: 065
  4. [THERAPY UNSPECIFIED] [Concomitant]
     Route: 065

REACTIONS (3)
  - FATIGUE [None]
  - NAUSEA [None]
  - NEOPLASM [None]
